FAERS Safety Report 15473010 (Version 2)
Quarter: 2018Q4

REPORT INFORMATION
  Report Type: Report from Study
  Country: None (occurrence: US)
  Receive Date: 20181008
  Receipt Date: 20181016
  Transmission Date: 20190205
  Serious: Yes (Death, Hospitalization)
  Sender: FDA-Public Use
  Company Number: US-ABBVIE-18K-163-2511133-00

PATIENT
  Age: 73 Year
  Sex: Female
  Weight: 42.68 kg

DRUGS (1)
  1. HUMIRA [Suspect]
     Active Substance: ADALIMUMAB
     Indication: RHEUMATOID ARTHRITIS
     Route: 058
     Dates: start: 20180804

REACTIONS (4)
  - Hepatic failure [Fatal]
  - Renal failure [Fatal]
  - Fluid retention [Fatal]
  - Heart valve replacement [Unknown]

NARRATIVE: CASE EVENT DATE: 2018
